FAERS Safety Report 14198734 (Version 1)
Quarter: 2017Q4

REPORT INFORMATION
  Report Type: Spontaneous
  Country: US (occurrence: US)
  Receive Date: 20171117
  Receipt Date: 20171117
  Transmission Date: 20180321
  Serious: No
  Sender: FDA-Public Use
  Company Number: US-PFIZER INC-2017490957

PATIENT
  Age: 65 Year
  Sex: Female
  Weight: 58.6 kg

DRUGS (3)
  1. LYRICA [Suspect]
     Active Substance: PREGABALIN
     Dosage: 150 MG, 2X/DAY
  2. GABAPENTIN. [Concomitant]
     Active Substance: GABAPENTIN
     Indication: SPINAL COLUMN STENOSIS
     Dosage: 600 MG (300 MG TWO CAPSULES), TWICE A DAY
  3. LYRICA [Suspect]
     Active Substance: PREGABALIN
     Indication: SPINAL COLUMN STENOSIS
     Dosage: 75 MG, 2X/DAY

REACTIONS (5)
  - Drug ineffective [Unknown]
  - Irritability [Not Recovered/Not Resolved]
  - Feeling abnormal [Not Recovered/Not Resolved]
  - Euphoric mood [Not Recovered/Not Resolved]
  - Intentional product misuse [Unknown]
